FAERS Safety Report 10334944 (Version 1)
Quarter: 2014Q3

REPORT INFORMATION
  Report Type: Spontaneous
  Country: US (occurrence: None)
  Receive Date: 20140722
  Receipt Date: 20140722
  Transmission Date: 20150326
  Serious: No
  Sender: FDA-Public Use
  Company Number: None

PATIENT
  Sex: Female
  Weight: 72.58 kg

DRUGS (1)
  1. NOVOLOG [Suspect]
     Active Substance: INSULIN ASPART
     Indication: BLOOD GLUCOSE ABNORMAL
     Dosage: 16 UNITS 3 X DAY BY INJECTION
     Dates: end: 20131224

REACTIONS (10)
  - Wheezing [None]
  - Asthenia [None]
  - Appetite disorder [None]
  - Weight increased [None]
  - Visual impairment [None]
  - Hepatomegaly [None]
  - Heart rate irregular [None]
  - Disturbance in attention [None]
  - Confusional state [None]
  - Hypoaesthesia [None]
